FAERS Safety Report 8458382-X (Version None)
Quarter: 2012Q2

REPORT INFORMATION
  Report Type: 
  Country: None (occurrence: None)
  Receive Date: 20120622
  Receipt Date: 20120614
  Transmission Date: 20120825
  Serious: Yes (Hospitalization)
  Sender: FDA-Public Use
  Company Number: US-PERRIGO-12US005199

PATIENT
  Age: 83 Year
  Sex: Male

DRUGS (7)
  1. ASPIRIN [Concomitant]
     Indication: PRODUCT USED FOR UNKNOWN INDICATION
     Dosage: 81 MG, QD
     Route: 048
  2. PRAVASTATIN [Concomitant]
     Indication: PRODUCT USED FOR UNKNOWN INDICATION
     Dosage: UNK, QD
     Route: 048
  3. LOSARTAN POTASSIUM [Concomitant]
     Indication: PRODUCT USED FOR UNKNOWN INDICATION
     Dosage: UNK, ONE DAILY
     Route: 048
  4. VERAPAMIL [Concomitant]
     Indication: PRODUCT USED FOR UNKNOWN INDICATION
     Dosage: UNK, BID
     Route: 048
  5. TESTOSTERONE [Suspect]
     Indication: BLOOD TESTOSTERONE DECREASED
     Dosage: 200 MG, MONTHLY
     Route: 030
     Dates: start: 20111201
  6. HYDROCHLOROTHIAZIDE [Concomitant]
     Indication: PRODUCT USED FOR UNKNOWN INDICATION
     Dosage: 25 MG, QD
     Route: 048
  7. TESTOSTERONE [Suspect]
     Dosage: 1 ML, MONTHLY
     Route: 030
     Dates: start: 20060101, end: 20111201

REACTIONS (7)
  - SKIN ULCER [None]
  - ERYTHEMA [None]
  - WOUND SECRETION [None]
  - INJECTION SITE MASS [None]
  - THROMBOSIS [None]
  - SWELLING [None]
  - INJECTION SITE HAEMATOMA [None]
